FAERS Safety Report 8726936 (Version 1)
Quarter: 2012Q4

REPORT INFORMATION
  Report Type: 
  Country: US (occurrence: US)
  Receive Date: 20120912
  Receipt Date: 20120912
  Transmission Date: 20130627
  Serious: Yes (Hospitalization)
  Sender: FDA-Public Use
  Company Number: US-ROCHE-1100693

PATIENT
  Sex: Female

DRUGS (5)
  1. ACTIVASE [Suspect]
     Indication: MYOCARDIAL INFARCTION
     Route: 065
  2. HEPARIN [Concomitant]
     Route: 042
  3. NITROGLYCERIN [Concomitant]
     Route: 042
  4. ASPIRIN [Concomitant]
     Route: 065
  5. LOPRESSOR [Concomitant]
     Route: 065

REACTIONS (4)
  - Postinfarction angina [Recovering/Resolving]
  - Chest pain [Unknown]
  - Hypertension [Unknown]
  - Dyspnoea [Unknown]
